FAERS Safety Report 5631849-5 (Version None)
Quarter: 2008Q1

REPORT INFORMATION
  Report Type: 
  Country: None (occurrence: None)
  Receive Date: 20080219
  Receipt Date: 20080219
  Transmission Date: 20080703
  Serious: Yes (Life-Threatening, Hospitalization)
  Sender: FDA-Public Use
  Company Number: None

PATIENT
  Age: 35 Year
  Sex: Female

DRUGS (2)
  1. NOVOSEVEN [Suspect]
     Indication: COAGULOPATHY
     Dosage: 6000 MG X1 IV BOLUS
     Route: 040
     Dates: start: 20080128, end: 20080128
  2. NOVOSEVEN [Suspect]
     Indication: SURGERY
     Dosage: 6000 MG X1 IV BOLUS
     Route: 040
     Dates: start: 20080128, end: 20080128

REACTIONS (5)
  - CAROTID ARTERY DISSECTION [None]
  - CEREBROVASCULAR ACCIDENT [None]
  - INTRACRANIAL ANEURYSM [None]
  - INTRACRANIAL PRESSURE INCREASED [None]
  - REFUSAL OF TREATMENT BY RELATIVE [None]
